FAERS Safety Report 5195662-8 (Version None)
Quarter: 2006Q4

REPORT INFORMATION
  Report Type: 
  Country: None (occurrence: None)
  Receive Date: 20061222
  Receipt Date: 20061222
  Transmission Date: 20070319
  Serious: Yes (Hospitalization)
  Sender: FDA-Public Use
  Company Number: None

PATIENT
  Sex: Female

DRUGS (7)
  1. GLEEVEC [Suspect]
     Indication: GLIOBLASTOMA MULTIFORME
     Dosage: 600 MG QD
  2. HYDROXYUREA [Suspect]
     Dosage: 500 MG  BID
  3. RAD001 [Suspect]
     Indication: GLIOBLASTOMA MULTIFORME
     Dosage: 5 MG  QD
  4. TEGRETOL [Concomitant]
  5. DECADRON [Concomitant]
  6. CLONOPIN [Concomitant]
  7. KEPPRA [Concomitant]

REACTIONS (6)
  - ANAPLASTIC ASTROCYTOMA [None]
  - CONVULSION [None]
  - ELECTROENCEPHALOGRAM ABNORMAL [None]
  - HEMIPARESIS [None]
  - MALIGNANT NEOPLASM PROGRESSION [None]
  - NEUROPATHY [None]
